FAERS Safety Report 8130278-2 (Version None)
Quarter: 2012Q1

REPORT INFORMATION
  Report Type: 
  Country: None (occurrence: None)
  Receive Date: 20120210
  Receipt Date: 20120203
  Transmission Date: 20120608
  Serious: Yes (Other)
  Sender: FDA-Public Use
  Company Number: PHHY2012BR009841

PATIENT
  Age: 57 Year
  Sex: Female

DRUGS (5)
  1. ATENOLOL [Concomitant]
  2. ALLOPURINOL [Concomitant]
  3. AMLODIPINE BESYLATE [Concomitant]
  4. DIOVAN [Suspect]
     Indication: HYPERTENSION
     Dosage: 120 TO 150 MG, UNK
  5. DIOVAN [Suspect]
     Dosage: 320 MG, DAILY

REACTIONS (9)
  - CEREBROVASCULAR ACCIDENT [None]
  - TRANSIENT ISCHAEMIC ATTACK [None]
  - HYPERTENSION [None]
  - BURSITIS [None]
  - BONE DISORDER [None]
  - LIMB DISCOMFORT [None]
  - PARALYSIS [None]
  - SPINAL DEFORMITY [None]
  - BONE PAIN [None]
